FAERS Safety Report 21903652 (Version 2)
Quarter: 2023Q1

REPORT INFORMATION
  Report Type: Spontaneous
  Country: GB (occurrence: GB)
  Receive Date: 20230124
  Receipt Date: 20230127
  Transmission Date: 20230417
  Serious: Yes (Other)
  Sender: FDA-Public Use
  Company Number: GB-ROCHE-3266432

PATIENT
  Age: 67 Year
  Sex: Female

DRUGS (20)
  1. BENDAMUSTINE [Suspect]
     Active Substance: BENDAMUSTINE
     Indication: Diffuse large B-cell lymphoma
     Dosage: POLA-BR
     Route: 042
     Dates: start: 20210927, end: 20211220
  2. BENDAMUSTINE [Suspect]
     Active Substance: BENDAMUSTINE
     Route: 042
     Dates: start: 20201012, end: 20201013
  3. CARBOPLATIN [Suspect]
     Active Substance: CARBOPLATIN
     Indication: Diffuse large B-cell lymphoma
     Dosage: R-GEMOX
     Route: 065
     Dates: start: 20220915, end: 20221229
  4. CISPLATIN [Suspect]
     Active Substance: CISPLATIN
     Indication: Diffuse large B-cell lymphoma
     Dosage: R-GDP
     Route: 065
     Dates: start: 20200810, end: 20200907
  5. CISPLATIN [Suspect]
     Active Substance: CISPLATIN
     Dosage: R-GEMOX
     Route: 065
     Dates: start: 20220915, end: 20221229
  6. DEXAMETHASONE [Suspect]
     Active Substance: DEXAMETHASONE
     Indication: Diffuse large B-cell lymphoma
     Dosage: R-GDP
     Route: 065
     Dates: start: 20200810, end: 20200907
  7. DOXORUBICIN [Suspect]
     Active Substance: DOXORUBICIN
     Indication: Diffuse large B-cell lymphoma
     Dosage: R-CHOP
     Route: 065
     Dates: start: 20191018, end: 20200131
  8. GEMCITABINE [Suspect]
     Active Substance: GEMCITABINE
     Indication: Diffuse large B-cell lymphoma
     Dosage: R-GEMOX
     Route: 065
     Dates: start: 20220915, end: 20221229
  9. GEMCITABINE [Suspect]
     Active Substance: GEMCITABINE
     Dosage: R-GDP
     Route: 065
     Dates: start: 20200810, end: 20200907
  10. OXALIPLATIN [Suspect]
     Active Substance: OXALIPLATIN
     Indication: Diffuse large B-cell lymphoma
     Dosage: R-GEMOX
     Route: 065
     Dates: start: 20220915, end: 20221229
  11. VINCRISTINE [Suspect]
     Active Substance: VINCRISTINE
     Indication: Diffuse large B-cell lymphoma
     Dosage: R-CHOP
     Route: 065
     Dates: start: 20191018, end: 20200131
  12. PREDNISONE [Suspect]
     Active Substance: PREDNISONE
     Indication: Diffuse large B-cell lymphoma
     Dosage: R-CHOP
     Route: 065
     Dates: start: 20191018, end: 20200131
  13. CYCLOPHOSPHAMIDE [Suspect]
     Active Substance: CYCLOPHOSPHAMIDE
     Indication: Diffuse large B-cell lymphoma
     Dosage: R-CHOP
     Route: 065
     Dates: start: 20191018, end: 20200131
  14. POLATUZUMAB VEDOTIN [Suspect]
     Active Substance: POLATUZUMAB VEDOTIN
     Indication: Diffuse large B-cell lymphoma
     Dosage: POLA-BR
     Route: 065
     Dates: start: 20210927, end: 20211220
  15. POLATUZUMAB VEDOTIN [Suspect]
     Active Substance: POLATUZUMAB VEDOTIN
     Route: 065
     Dates: start: 20201012, end: 20201013
  16. RITUXIMAB [Suspect]
     Active Substance: RITUXIMAB
     Indication: Diffuse large B-cell lymphoma
     Dosage: R-CHOP
     Route: 065
     Dates: start: 20191018, end: 20200131
  17. RITUXIMAB [Suspect]
     Active Substance: RITUXIMAB
     Dosage: R-GDP
     Route: 065
     Dates: start: 20200810, end: 20200907
  18. RITUXIMAB [Suspect]
     Active Substance: RITUXIMAB
     Route: 065
     Dates: start: 20201012, end: 20201013
  19. RITUXIMAB [Suspect]
     Active Substance: RITUXIMAB
     Dosage: POLA-BR
     Route: 065
     Dates: start: 20210927, end: 20211220
  20. GENETICALLY-MODIFIED AUTOLOGOUS T CELLS NOS [Suspect]
     Active Substance: GENETICALLY-MODIFIED AUTOLOGOUS T CELLS NOS
     Indication: Diffuse large B-cell lymphoma
     Route: 065
     Dates: start: 20201110

REACTIONS (2)
  - Malignant neoplasm progression [Unknown]
  - Off label use [Unknown]
